FAERS Safety Report 4307059-0 (Version None)
Quarter: 2004Q1

REPORT INFORMATION
  Report Type: 
  Country: None (occurrence: None)
  Receive Date: 20040226
  Receipt Date: 20040226
  Transmission Date: 20041129
  Serious: No
  Sender: FDA-Public Use
  Company Number: None

PATIENT
  Age: 41 Year
  Sex: Female
  Weight: 80.7403 kg

DRUGS (1)
  1. SIMVASTATIN [Suspect]
     Indication: HYPERLIPIDAEMIA
     Dosage: 10 MG TAB PO QHS
     Route: 048

REACTIONS (4)
  - EYE PRURITUS [None]
  - FLUSHING [None]
  - SWELLING FACE [None]
  - SWOLLEN TONGUE [None]
